FAERS Safety Report 6550079-6 (Version None)
Quarter: 2010Q1

REPORT INFORMATION
  Report Type: 
  Country: None (occurrence: None)
  Receive Date: 20100125
  Receipt Date: 20100115
  Transmission Date: 20100710
  Serious: Yes (Hospitalization)
  Sender: FDA-Public Use
  Company Number: US-JNJCH-2010001582

PATIENT
  Age: 75 Year
  Sex: Female
  Weight: 90.7 kg

DRUGS (1)
  1. ROLAIDS MULTI-SYMPTOM [Suspect]
     Indication: DYSPEPSIA
     Dosage: TEXT:2 TABLETS EVERY THREE WEEKS
     Route: 048
     Dates: start: 20091101, end: 20091205

REACTIONS (3)
  - DIARRHOEA [None]
  - GASTROINTESTINAL INFLAMMATION [None]
  - RECTAL HAEMORRHAGE [None]
